FAERS Safety Report 8941647 (Version 2)
Quarter: 2012Q4

REPORT INFORMATION
  Report Type: 
  Country: US (occurrence: US)
  Receive Date: 20121203
  Receipt Date: 20121214
  Transmission Date: 20130627
  Serious: Yes (Death, Disabling, Other)
  Sender: FDA-Public Use
  Company Number: US-CELGENEUS-163-21880-12102394

PATIENT
  Age: 54 None
  Sex: Male
  Weight: 94.89 kg

DRUGS (2)
  1. REVLIMID [Suspect]
     Indication: MULTIPLE MYELOMA
     Dosage: 25 Milligram
     Route: 048
     Dates: start: 201108, end: 201203
  2. ASA [Concomitant]
     Indication: DEEP VENOUS THROMBOSIS PROPHYLAXIS
     Dosage: 81 Milligram
     Route: 065

REACTIONS (2)
  - Plasma cell myeloma [Fatal]
  - Platelet count decreased [Not Recovered/Not Resolved]
